FAERS Safety Report 5411726-5 (Version None)
Quarter: 2007Q3

REPORT INFORMATION
  Report Type: 
  Country: None (occurrence: None)
  Receive Date: 20070813
  Receipt Date: 20070809
  Transmission Date: 20080115
  Serious: Yes (Other)
  Sender: FDA-Public Use
  Company Number: PHEH2007US03667

PATIENT
  Age: 92 Year
  Sex: Female

DRUGS (1)
  1. ENABLEX [Suspect]
     Indication: POLLAKIURIA
     Dates: start: 20070101, end: 20070101

REACTIONS (1)
  - HALLUCINATION [None]
